FAERS Safety Report 13820328 (Version 1)
Quarter: 2017Q3

REPORT INFORMATION
  Report Type: Spontaneous
  Country: NL (occurrence: NL)
  Receive Date: 20170801
  Receipt Date: 20170801
  Transmission Date: 20171127
  Serious: Yes (Other)
  Sender: FDA-Public Use
  Company Number: NL-PFIZER INC-2017330234

PATIENT
  Age: 69 Year
  Sex: Female
  Weight: 60 kg

DRUGS (4)
  1. CALCI CHEW D3 [Concomitant]
     Active Substance: CALCIUM CARBONATE\CHOLECALCIFEROL
     Dosage: 1 DF, UNK
     Route: 048
  2. RISEDRONIC ACID [Concomitant]
     Active Substance: RISEDRONIC ACID
     Dosage: 1 DF, UNK
     Route: 048
  3. ATORVASTATINE PFIZER [Suspect]
     Active Substance: ATORVASTATIN
     Indication: LOW DENSITY LIPOPROTEIN INCREASED
     Dosage: 40 MG, 1X/DAY
     Route: 048
     Dates: start: 20170615
  4. EUTHYROX [Concomitant]
     Active Substance: LEVOTHYROXINE SODIUM
     Dosage: 1 DF, UNK
     Route: 048

REACTIONS (3)
  - Gait disturbance [Not Recovered/Not Resolved]
  - Dizziness [Not Recovered/Not Resolved]
  - Muscle spasms [Recovered/Resolved with Sequelae]

NARRATIVE: CASE EVENT DATE: 20170617
